FAERS Safety Report 6283287-2 (Version None)
Quarter: 2009Q3

REPORT INFORMATION
  Report Type: 
  Country: None (occurrence: None)
  Receive Date: 20090724
  Receipt Date: 20090717
  Transmission Date: 20100115
  Serious: Yes (Death)
  Sender: FDA-Public Use
  Company Number: JP-JNJFOC-20090702732

PATIENT
  Sex: Female
  Weight: 41 kg

DRUGS (32)
  1. DUROTEP MT PATCH [Suspect]
     Route: 062
  2. DUROTEP MT PATCH [Suspect]
     Route: 062
  3. DUROTEP MT PATCH [Suspect]
     Route: 062
  4. DUROTEP MT PATCH [Suspect]
     Indication: CANCER PAIN
     Route: 062
  5. CRAVIT [Concomitant]
     Route: 048
  6. OXYCONTIN [Concomitant]
     Indication: CANCER PAIN
     Route: 048
  7. GOSHA-JINKI-GAN [Concomitant]
     Route: 048
  8. GOSHA-JINKI-GAN [Concomitant]
     Route: 048
  9. GOSHA-JINKI-GAN [Concomitant]
     Indication: ANALGESIC THERAPY
     Route: 048
  10. SINSERON [Concomitant]
     Route: 048
  11. SINSERON [Concomitant]
     Route: 048
  12. SINSERON [Concomitant]
     Route: 048
  13. SINSERON [Concomitant]
     Route: 048
  14. ATELEC [Concomitant]
     Route: 048
  15. ATELEC [Concomitant]
     Route: 048
  16. ATELEC [Concomitant]
     Route: 048
  17. DIOVAN [Concomitant]
     Route: 048
  18. DIOVAN [Concomitant]
     Route: 048
  19. DIOVAN [Concomitant]
     Route: 048
  20. MAGMITT [Concomitant]
     Route: 048
  21. MAGMITT [Concomitant]
     Route: 048
  22. MAGMITT [Concomitant]
     Route: 048
  23. MAGMITT [Concomitant]
     Route: 048
  24. NOVAMIN [Concomitant]
     Route: 048
  25. NOVAMIN [Concomitant]
     Route: 048
  26. NOVAMIN [Concomitant]
     Route: 048
  27. PROTECADIN [Concomitant]
     Route: 048
  28. PROMAC (POLAPREZINC) [Concomitant]
     Route: 048
  29. HANGE-SHASHIN-TO (CHINESE HERBAL MEDICINE) [Concomitant]
     Route: 048
  30. OPSO [Concomitant]
     Indication: ANALGESIC THERAPY
     Dosage: AS NEEDED
     Route: 048
  31. DERSON [Concomitant]
     Route: 048
  32. MORPHINE HYDROCHLORIDE [Concomitant]
     Indication: ANALGESIC THERAPY
     Route: 062

REACTIONS (2)
  - MALIGNANT ASCITES [None]
  - WRONG TECHNIQUE IN DRUG USAGE PROCESS [None]
